FAERS Safety Report 9692583 (Version 1)
Quarter: 2013Q4

REPORT INFORMATION
  Report Type: Spontaneous
  Country: US (occurrence: US)
  Receive Date: 20131118
  Receipt Date: 20131118
  Transmission Date: 20140711
  Serious: No
  Sender: FDA-Public Use
  Company Number: US-009507513-1311USA004314

PATIENT
  Age: 56 Year
  Sex: Male

DRUGS (3)
  1. REBETOL [Suspect]
     Dosage: UNK
     Route: 048
  2. PEGINTRON [Suspect]
     Indication: HEPATITIS C
     Dosage: REDIPEN 150 MICROGRAM, QW
     Route: 058
     Dates: start: 201310
  3. INCIVEK [Suspect]
     Dosage: UNK

REACTIONS (1)
  - Injection site pruritus [Unknown]
